FAERS Safety Report 23396665 (Version 2)
Quarter: 2024Q1

REPORT INFORMATION
  Report Type: Other
  Country: NP (occurrence: NP)
  Receive Date: 20240112
  Receipt Date: 20240117
  Transmission Date: 20240410
  Serious: Yes (Hospitalization, Other)
  Sender: FDA-Public Use
  Company Number: NP-Covis Pharma GmbH-2024COV00041

PATIENT
  Age: 58 Year
  Sex: Male

DRUGS (2)
  1. RILUZOLE [Suspect]
     Active Substance: RILUZOLE
     Indication: Amyotrophic lateral sclerosis
     Route: 048
  2. EDARAVONE [Suspect]
     Active Substance: EDARAVONE
     Indication: Amyotrophic lateral sclerosis
     Route: 042

REACTIONS (3)
  - Disease progression [Unknown]
  - Respiratory failure [Unknown]
  - Autonomic nervous system imbalance [Unknown]
